FAERS Safety Report 6959322 (Version 2)
Quarter: 2015Q2

REPORT INFORMATION
  Report Type: Spontaneous
  Country: IT (occurrence: None)
  Receive Date: 20090325
  Receipt Date: 20150403
  Transmission Date: 20150821
  Serious: Yes (Life-Threatening)
  Sender: FDA-Public Use
  Company Number: 221874

PATIENT
  Age: 50 Year
  Sex: Female

DRUGS (4)
  1. PACLITAXEL. [Suspect]
     Active Substance: PACLITAXEL
     Indication: BLADDER ADENOCARCINOMA STAGE UNSPECIFIED
     Dosage: 60 MG/M2 INTRAVENOUS
     Route: 042
     Dates: start: 20090306, end: 20090306
  2. TRIMETON [Concomitant]
     Active Substance: CHLORPHENIRAMINE MALEATE
  3. RANITIDINE [Concomitant]
     Active Substance: RANITIDINE\RANITIDINE HYDROCHLORIDE
  4. DECADRON [Concomitant]
     Active Substance: DEXAMETHASONE

REACTIONS (7)
  - Rash [None]
  - Arthralgia [None]
  - Burning sensation [None]
  - Rash erythematous [None]
  - Hypersensitivity [None]
  - Pruritus [None]
  - Blood pressure increased [None]

NARRATIVE: CASE EVENT DATE: 20090306
